FAERS Safety Report 5770850-8 (Version None)
Quarter: 2008Q2

REPORT INFORMATION
  Report Type: 
  Country: None (occurrence: None)
  Receive Date: 20080613
  Receipt Date: 20080519
  Transmission Date: 20081010
  Serious: No
  Sender: FDA-Public Use
  Company Number: US-ABBOTT-08P-163-0452292-00

PATIENT
  Age: 48 Year
  Sex: Female

DRUGS (4)
  1. HUMIRA [Suspect]
     Indication: PSORIASIS
     Route: 058
     Dates: start: 20080514, end: 20080514
  2. HUMIRA [Suspect]
     Route: 058
     Dates: start: 20080521, end: 20080521
  3. HUMIRA [Suspect]
     Route: 058
  4. UNKNOWN HIGH CHOLESTEROL MEDICATION [Concomitant]
     Indication: BLOOD CHOLESTEROL INCREASED

REACTIONS (2)
  - MEDICATION ERROR [None]
  - OVERDOSE [None]
